FAERS Safety Report 5598044-X (Version None)
Quarter: 2008Q1

REPORT INFORMATION
  Report Type: 
  Country: None (occurrence: None)
  Receive Date: 20080122
  Receipt Date: 20080111
  Transmission Date: 20080703
  Serious: Yes (Disabling)
  Sender: FDA-Public Use
  Company Number: GB-ROCHE-535744

PATIENT
  Age: 18 Year
  Sex: Male
  Weight: 61 kg

DRUGS (1)
  1. ROACCUTANE [Suspect]
     Indication: ACNE
     Route: 048
     Dates: start: 20071001, end: 20071128

REACTIONS (1)
  - FACIAL PALSY [None]
